FAERS Safety Report 18930971 (Version 2)
Quarter: 2021Q2

REPORT INFORMATION
  Report Type: Spontaneous
  Country: FR (occurrence: FR)
  Receive Date: 20210224
  Receipt Date: 20210406
  Transmission Date: 20210717
  Serious: Yes (Death, Disabling, Other)
  Sender: FDA-Public Use
  Company Number: FR-SA-2020SA366217

PATIENT
  Age: 72 Year
  Sex: Male
  Weight: 105 kg

DRUGS (4)
  1. POLARAMINE [Concomitant]
     Active Substance: DEXCHLORPHENIRAMINE MALEATE
  2. SOLU?MEDROL [Concomitant]
     Active Substance: METHYLPREDNISOLONE SODIUM SUCCINATE
  3. CAPLACIZUMAB [Suspect]
     Active Substance: CAPLACIZUMAB
     Indication: ACTIVATED PARTIAL THROMBOPLASTIN TIME
     Dosage: 10 MG
     Route: 058
     Dates: start: 20201006, end: 20201006
  4. CISPLATIN. [Concomitant]
     Active Substance: CISPLATIN
     Dosage: UNK
     Dates: start: 20151216

REACTIONS (7)
  - Subdural haematoma [Fatal]
  - Product administration interrupted [Unknown]
  - Dysarthria [Fatal]
  - Disability [Fatal]
  - Unintentional use for unapproved indication [Unknown]
  - Condition aggravated [Fatal]
  - Haemorrhage [Unknown]

NARRATIVE: CASE EVENT DATE: 20201007
